FAERS Safety Report 4408682-5 (Version None)
Quarter: 2004Q3

REPORT INFORMATION
  Report Type: 
  Country: None (occurrence: None)
  Receive Date: 20040723
  Receipt Date: 20040716
  Transmission Date: 20050211
  Serious: Yes (Hospitalization)
  Sender: FDA-Public Use
  Company Number: 2004SE04111

PATIENT
  Age: 82 Year
  Sex: Male

DRUGS (1)
  1. ZESTRIL [Suspect]
     Indication: CARDIAC FAILURE
     Dosage: 10 MG DAILY PO
     Route: 048
     Dates: start: 20030501, end: 20040630

REACTIONS (3)
  - ANGIONEUROTIC OEDEMA [None]
  - DROOLING [None]
  - SWOLLEN TONGUE [None]
